FAERS Safety Report 15820297 (Version 1)
Quarter: 2019Q1

REPORT INFORMATION
  Report Type: Spontaneous
  Country: US (occurrence: US)
  Receive Date: 20190114
  Receipt Date: 20190114
  Transmission Date: 20190417
  Serious: Yes (Death)
  Sender: FDA-Public Use
  Company Number: US-MICRO LABS LIMITED-ML2019-00030

PATIENT
  Age: 36 Year
  Sex: Male

DRUGS (5)
  1. BENZOYLECGONINE [Suspect]
     Active Substance: BENZOYLECGONINE
  2. MORPHINE [Suspect]
     Active Substance: MORPHINE
  3. COCAINE [Suspect]
     Active Substance: COCAINE
  4. DIPHENHYDRAMINE HYDROCHLORIDE. [Suspect]
     Active Substance: DIPHENHYDRAMINE HYDROCHLORIDE
  5. FENTANYL. [Suspect]
     Active Substance: FENTANYL

REACTIONS (1)
  - Accidental overdose [Fatal]
